FAERS Safety Report 15360973 (Version 3)
Quarter: 2018Q4

REPORT INFORMATION
  Report Type: Spontaneous
  Country: US (occurrence: US)
  Receive Date: 20180907
  Receipt Date: 20181129
  Transmission Date: 20190204
  Serious: No
  Sender: FDA-Public Use
  Company Number: US-SA-2018SA248934

PATIENT
  Age: 63 Year
  Sex: Male
  Weight: 68 kg

DRUGS (6)
  1. PRALUENT [Suspect]
     Active Substance: ALIROCUMAB
     Indication: TYPE IIA HYPERLIPIDAEMIA
     Dosage: 75 MG, QOW
     Route: 058
     Dates: start: 20180823, end: 20180920
  2. ALIROCUMAB PREFILLED PEN [Suspect]
     Active Substance: ALIROCUMAB
     Indication: TYPE IIA HYPERLIPIDAEMIA
     Dosage: UNK UNK, QOW
     Route: 058
     Dates: start: 20180823, end: 20180920
  3. PRALUENT [Suspect]
     Active Substance: ALIROCUMAB
     Indication: ARTERIAL OCCLUSIVE DISEASE
  4. ALIROCUMAB PREFILLED PEN [Suspect]
     Active Substance: ALIROCUMAB
     Indication: ARTERIAL OCCLUSIVE DISEASE
  5. REPATHA [Concomitant]
     Active Substance: EVOLOCUMAB
     Dosage: UNK
  6. REPATHA [Concomitant]
     Active Substance: EVOLOCUMAB
     Dosage: UNK

REACTIONS (8)
  - Nasopharyngitis [Unknown]
  - Nasal congestion [Unknown]
  - Oropharyngeal pain [Unknown]
  - Rhinorrhoea [Unknown]
  - Sinus headache [Unknown]
  - Cough [Unknown]
  - Pain [Unknown]
  - Malaise [Unknown]

NARRATIVE: CASE EVENT DATE: 201808
